FAERS Safety Report 4506842-6 (Version None)
Quarter: 2004Q4

REPORT INFORMATION
  Report Type: 
  Country: None (occurrence: None)
  Receive Date: 20041117
  Receipt Date: 20041109
  Transmission Date: 20050328
  Serious: Yes (Death)
  Sender: FDA-Public Use
  Company Number: USA-2004-0016118

PATIENT
  Age: 59 Year
  Sex: Male

DRUGS (6)
  1. OXYCONTIN [Suspect]
     Indication: PAIN
     Dosage: 80 MG, BID
     Dates: end: 20040714
  2. ADVAIR DISKUS (FLUTICASONE PROPIONATE, SALMETEROL XINAFOATE) [Concomitant]
  3. LASIX [Concomitant]
  4. PAXIL [Concomitant]
  5. LORCET-HD [Concomitant]
  6. NEXIUM [Concomitant]

REACTIONS (1)
  - DEATH [None]
